FAERS Safety Report 9268449 (Version 3)
Quarter: 2013Q2

REPORT INFORMATION
  Report Type: Spontaneous
  Country: US (occurrence: US)
  Receive Date: 20130502
  Receipt Date: 20130625
  Transmission Date: 20140414
  Serious: Yes (Other)
  Sender: FDA-Public Use
  Company Number: US-UCBSA-084735

PATIENT
  Sex: Male
  Weight: 79.3 kg

DRUGS (5)
  1. VIMPAT [Suspect]
     Indication: EPILEPSY
     Dosage: EXP DATE: 30-APR-2016
  2. VIMPAT [Suspect]
     Indication: CONVULSION
     Dosage: EXP DATE: 30-APR-2016
  3. KEPPRA [Suspect]
     Indication: EPILEPSY
  4. KEPPRA [Suspect]
     Indication: CONVULSION
  5. POTIKA [Concomitant]
     Dosage: UNKNOWN DOSE

REACTIONS (3)
  - Brain operation [Unknown]
  - Convulsion [Not Recovered/Not Resolved]
  - Amnesia [Unknown]
